FAERS Safety Report 17887222 (Version 3)
Quarter: 2021Q2

REPORT INFORMATION
  Report Type: Spontaneous
  Country: DE (occurrence: DE)
  Receive Date: 20200612
  Receipt Date: 20210630
  Transmission Date: 20210717
  Serious: Yes (Hospitalization, Other)
  Sender: FDA-Public Use
  Company Number: DE-AUROBINDO-AUR-APL-2020-028224

PATIENT
  Sex: Female
  Weight: 70 kg

DRUGS (7)
  1. VALSARTAN MYLAN [Suspect]
     Active Substance: VALSARTAN
     Indication: PRODUCT USED FOR UNKNOWN INDICATION
     Dosage: 80 MILLIGRAM, ONCE A DAY
     Route: 065
     Dates: start: 2012
  2. VALSARTAN 1A PHARMA PLUS [Suspect]
     Active Substance: HYDROCHLOROTHIAZIDE\VALSARTAN
     Indication: PRODUCT USED FOR UNKNOWN INDICATION
     Dosage: 80 MILLIGRAM (12.5 MG)
     Route: 065
     Dates: start: 201405, end: 201503
  3. VALSARTAN 1A PHARMA PLUS [Suspect]
     Active Substance: HYDROCHLOROTHIAZIDE\VALSARTAN
     Dosage: 80 MILLIGRAM (12.5 MG)
     Route: 065
     Dates: start: 201701, end: 201807
  4. TEGRETAL [Concomitant]
     Active Substance: CARBAMAZEPINE
     Indication: PRODUCT USED FOR UNKNOWN INDICATION
     Dosage: 200 MILLIGRAM
     Route: 065
     Dates: start: 2011
  5. VALSARTAN. [Suspect]
     Active Substance: VALSARTAN
     Indication: CARDIAC DISORDER
     Dosage: 80 MILLIGRAM (12.5 MG)
     Route: 065
     Dates: start: 2009, end: 20180713
  6. BISOPROLOL [Concomitant]
     Active Substance: BISOPROLOL
     Indication: PRODUCT USED FOR UNKNOWN INDICATION
     Dosage: 5 MILLIGRAM
     Route: 065
     Dates: start: 2009
  7. ACETYLSALICYLIC ACID [Concomitant]
     Active Substance: ASPIRIN
     Indication: PRODUCT USED FOR UNKNOWN INDICATION
     Dosage: UNK
     Route: 065
     Dates: start: 2009

REACTIONS (17)
  - Hyperventilation [Unknown]
  - Chest pain [Unknown]
  - Product contamination [Unknown]
  - Trigeminal neuralgia [Not Recovered/Not Resolved]
  - Mental impairment [Unknown]
  - Emotional distress [Unknown]
  - Restlessness [Unknown]
  - Tremor [Unknown]
  - Fear of disease [Unknown]
  - Anxiety [Unknown]
  - Hypertension [Unknown]
  - Palpitations [Not Recovered/Not Resolved]
  - Dizziness [Not Recovered/Not Resolved]
  - Hyperhidrosis [Unknown]
  - Cerebrovascular accident [Recovering/Resolving]
  - Gastrointestinal disorder [Unknown]
  - Impaired quality of life [Unknown]

NARRATIVE: CASE EVENT DATE: 2009
